FAERS Safety Report 15758447 (Version 7)
Quarter: 2019Q2

REPORT INFORMATION
  Report Type: Report from Study
  Country: None (occurrence: CH)
  Receive Date: 20181225
  Receipt Date: 20190411
  Transmission Date: 20190711
  Serious: Yes (Hospitalization, Other)
  Sender: FDA-Public Use
  Company Number: CH-ABBVIE-18S-151-2597540-00

PATIENT
  Age: 63 Year
  Sex: Male
  Weight: 71.6 kg

DRUGS (15)
  1. NEXIUM [Suspect]
     Active Substance: ESOMEPRAZOLE MAGNESIUM
     Indication: PRODUCT USED FOR UNKNOWN INDICATION
     Route: 065
  2. CIRCADIN [Suspect]
     Active Substance: MELATONIN
     Indication: PRODUCT USED FOR UNKNOWN INDICATION
     Route: 065
  3. CLOZAPINE. [Suspect]
     Active Substance: CLOZAPINE
     Indication: PRODUCT USED FOR UNKNOWN INDICATION
     Route: 065
  4. MADOPAR [Concomitant]
     Active Substance: BENSERAZIDE HYDROCHLORIDE\LEVODOPA
     Indication: PRODUCT USED FOR UNKNOWN INDICATION
     Route: 048
     Dates: start: 20181214
  5. VITAMIN D3 STREULI [Concomitant]
     Active Substance: CHOLECALCIFEROL
     Indication: PRODUCT USED FOR UNKNOWN INDICATION
     Dosage: 0.2 ML IN THE MORNING (4000 IU/ML)
     Route: 048
  6. FRESUBIN [Concomitant]
     Active Substance: AMINO ACIDS\DEXTROSE\ELECTROLYTES NOS\SOYBEAN OIL\VITAMINS
     Indication: PRODUCT USED FOR UNKNOWN INDICATION
     Dosage: IF LESS THAN HALF A MEAL EATEN: 1X 200ML
     Route: 065
  7. DAFALGAN [Concomitant]
     Active Substance: ACETAMINOPHEN
     Indication: PRODUCT USED FOR UNKNOWN INDICATION
     Dosage: AS RESERVE FOR PAIN: 1 TABLET, MAX. 6X/24H
     Route: 048
  8. EXELON [Concomitant]
     Active Substance: RIVASTIGMINE TARTRATE
     Indication: PRODUCT USED FOR UNKNOWN INDICATION
     Dosage: 1 PATCH IN THE MORNING
     Route: 065
  9. DUODOPA [Suspect]
     Active Substance: CARBIDOPA\LEVODOPA
     Indication: PRODUCT USED FOR UNKNOWN INDICATION
     Dosage: MD 5.5ML, CD 3.7 ML/H, ED2ML, 16H THERAPY
     Route: 050
     Dates: start: 20180823, end: 20180824
  10. DUODOPA [Suspect]
     Active Substance: CARBIDOPA\LEVODOPA
     Dosage: MD: 5.5 ML, CR DAY: 3.3 ML/H, ED: 2 ML
     Route: 050
  11. QUETIAPIN SANDOZ [Suspect]
     Active Substance: QUETIAPINE
     Indication: PRODUCT USED FOR UNKNOWN INDICATION
     Dosage: AT 12:00 2 TAB, AT 17:00 2 TAB,AT 21:00 1 TAB AS RESERVE IF RESTLESS: MAX. 4X/24H
     Route: 048
  12. FRAGMIN [Concomitant]
     Active Substance: DALTEPARIN SODIUM
     Indication: PRODUCT USED FOR UNKNOWN INDICATION
     Dosage: DAILY AT 20:00?(5000 IU/0.2ML)
     Route: 058
  13. DUODOPA [Suspect]
     Active Substance: CARBIDOPA\LEVODOPA
     Dosage: MD 5.5ML, CD 4.1 ML/H, ED 2ML
     Route: 050
     Dates: start: 20181218
  14. DUODOPA [Suspect]
     Active Substance: CARBIDOPA\LEVODOPA
     Dosage: MD5.5ML, CD 4.1 ML/H, ED2ML, 16H THERAPY
     Route: 050
     Dates: start: 20180824, end: 20181214
  15. MOVICOL [Concomitant]
     Active Substance: POLYETHYLENE GLYCOL 3350\POTASSIUM CHLORIDE\SODIUM BICARBONATE\SODIUM CHLORIDE
     Indication: PRODUCT USED FOR UNKNOWN INDICATION
     Dosage: AS RESERVE FOR OBSTIPATION:?25ML, MAX. 3X/DAY
     Route: 065

REACTIONS (27)
  - Device occlusion [Recovered/Resolved]
  - Device connection issue [Recovered/Resolved]
  - Wrong technique in device usage process [Recovered/Resolved]
  - Pallor [Unknown]
  - Device dislocation [Recovered/Resolved]
  - Infection [Unknown]
  - Dysphonia [Unknown]
  - Parkinsonism [Not Recovered/Not Resolved]
  - Reduced facial expression [Not Recovered/Not Resolved]
  - Yellow skin [Unknown]
  - General physical health deterioration [Unknown]
  - Delirium [Not Recovered/Not Resolved]
  - Neutropenia [Unknown]
  - Resting tremor [Unknown]
  - Leukopenia [Not Recovered/Not Resolved]
  - Thrombocytopenia [Not Recovered/Not Resolved]
  - Orthostatic hypotension [Recovering/Resolving]
  - Disorientation [Unknown]
  - Muscle rigidity [Unknown]
  - Hallucination [Unknown]
  - Intentional medical device removal by patient [Recovered/Resolved]
  - Dementia [Unknown]
  - Orthostatic intolerance [Unknown]
  - Anaemia [Not Recovered/Not Resolved]
  - Confusional state [Unknown]
  - Pancytopenia [Unknown]
  - Dysarthria [Unknown]

NARRATIVE: CASE EVENT DATE: 2018
